FAERS Safety Report 15839680 (Version 5)
Quarter: 2020Q2

REPORT INFORMATION
  Report Type: Spontaneous
  Country: US (occurrence: US)
  Receive Date: 20190117
  Receipt Date: 20200612
  Transmission Date: 20200713
  Serious: Yes (Other)
  Sender: FDA-Public Use
  Company Number: US-PFIZER INC-2019021872

PATIENT
  Age: 63 Year
  Sex: Male

DRUGS (2)
  1. DILANTIN [Suspect]
     Active Substance: PHENYTOIN
     Dosage: 100 MG, 2X/DAY
     Route: 048
  2. DILANTIN [Suspect]
     Active Substance: PHENYTOIN
     Dosage: 250 MG, DAILY
     Route: 048

REACTIONS (2)
  - Seizure [Unknown]
  - Dizziness [Unknown]
